FAERS Safety Report 9034407 (Version 1)
Quarter: 2013Q1

REPORT INFORMATION
  Report Type: Spontaneous
  Country: US (occurrence: None)
  Receive Date: 20130116
  Receipt Date: 20130116
  Transmission Date: 20140127
  Serious: Yes (Hospitalization)
  Sender: FDA-Public Use
  Company Number: None

PATIENT
  Age: 63 Year
  Sex: Male
  Weight: 95 kg

DRUGS (2)
  1. XARELTO 15 MG JANSSEN [Suspect]
     Indication: SUPRAVENTRICULAR TACHYCARDIA
     Dosage: 15 MG BID PO
     Route: 048
     Dates: start: 20130102, end: 20130112
  2. XARELTO 15 MG JANSSEN [Suspect]
     Indication: ATRIAL FLUTTER
     Dosage: 15 MG BID PO
     Route: 048
     Dates: start: 20130102, end: 20130112

REACTIONS (6)
  - Abdominal pain [None]
  - Nausea [None]
  - Jaundice [None]
  - Aspartate aminotransferase increased [None]
  - Alanine aminotransferase increased [None]
  - Incorrect dose administered [None]
